FAERS Safety Report 6960253-2 (Version None)
Quarter: 2010Q3

REPORT INFORMATION
  Report Type: 
  Country: None (occurrence: None)
  Receive Date: 20100901
  Receipt Date: 20100824
  Transmission Date: 20110219
  Serious: Yes (Other)
  Sender: FDA-Public Use
  Company Number: US-ELI_LILLY_AND_COMPANY-US201008008624

PATIENT
  Age: 52 Year

DRUGS (1)
  1. HUMALOG [Suspect]
     Indication: DIABETES MELLITUS

REACTIONS (5)
  - ANXIETY DISORDER [None]
  - BLOOD CHOLESTEROL INCREASED [None]
  - ERECTILE DYSFUNCTION [None]
  - HYPERTENSION [None]
  - VISUAL ACUITY REDUCED [None]
